FAERS Safety Report 21434056 (Version 2)
Quarter: 2022Q4

REPORT INFORMATION
  Report Type: Spontaneous
  Country: ES (occurrence: ES)
  Receive Date: 20221010
  Receipt Date: 20221018
  Transmission Date: 20230112
  Serious: Yes (Hospitalization, Other)
  Sender: FDA-Public Use
  Company Number: ES-MACLEODS PHARMA EU LTD-MAC2022037646

PATIENT

DRUGS (1)
  1. TAMSULOSIN [Suspect]
     Active Substance: TAMSULOSIN
     Indication: Benign prostatic hyperplasia
     Dosage: 4 MICROGRAM, QD
     Route: 065

REACTIONS (2)
  - Priapism [Recovering/Resolving]
  - Erectile dysfunction [Unknown]
